FAERS Safety Report 4546199-8 (Version None)
Quarter: 2005Q1

REPORT INFORMATION
  Report Type: 
  Country: None (occurrence: None)
  Receive Date: 20050103
  Receipt Date: 20041224
  Transmission Date: 20050727
  Serious: Yes (Hospitalization)
  Sender: FDA-Public Use
  Company Number: 2004119591

PATIENT
  Age: 61 Year
  Sex: Female
  Weight: 90.7194 kg

DRUGS (3)
  1. NICORETTE [Suspect]
     Indication: SMOKING CESSATION THERAPY
     Dosage: 1 CARTRIDGE TID, INHALATION
     Route: 055
     Dates: start: 20041006, end: 20041115
  2. FLUTICASONE PROPIONATE [Concomitant]
  3. MULTIVITAMINS (ASCORBIC ACID, ERGOCALCIFEROL, FOLIC ACID, NICOTINAMIDE [Concomitant]

REACTIONS (7)
  - ASTHMA [None]
  - COUGH [None]
  - DYSPNOEA [None]
  - FATIGUE [None]
  - FEELING ABNORMAL [None]
  - INFLUENZA LIKE ILLNESS [None]
  - UPPER RESPIRATORY TRACT INFECTION [None]
